FAERS Safety Report 18906364 (Version 1)
Quarter: 2021Q1

REPORT INFORMATION
  Report Type: Spontaneous
  Country: SI (occurrence: SI)
  Receive Date: 20210217
  Receipt Date: 20210217
  Transmission Date: 20210420
  Serious: Yes (Hospitalization)
  Sender: FDA-Public Use
  Company Number: SI-ELI_LILLY_AND_COMPANY-SI202102003707

PATIENT
  Sex: Male

DRUGS (3)
  1. ZYPADHERA [Suspect]
     Active Substance: OLANZAPINE PAMOATE
     Indication: PRODUCT USED FOR UNKNOWN INDICATION
     Dosage: 300 DOSAGE FORM, 2/M
     Route: 030
  2. ZYPADHERA [Suspect]
     Active Substance: OLANZAPINE PAMOATE
     Indication: PRODUCT USED FOR UNKNOWN INDICATION
     Dosage: 300 DOSAGE FORM, 2/M
     Route: 030
  3. ZYPADHERA [Suspect]
     Active Substance: OLANZAPINE PAMOATE
     Indication: PRODUCT USED FOR UNKNOWN INDICATION
     Dosage: 300 DOSAGE FORM, 2/M
     Route: 030

REACTIONS (8)
  - Cerebral disorder [Unknown]
  - Hepatic enzyme increased [Unknown]
  - Hernia [Unknown]
  - Dyskinesia [Unknown]
  - Renal disorder [Unknown]
  - Alopecia [Unknown]
  - Spider vein [Unknown]
  - Hyperthermia [Unknown]
